FAERS Safety Report 5066388-6 (Version None)
Quarter: 2006Q3

REPORT INFORMATION
  Report Type: 
  Country: None (occurrence: None)
  Receive Date: 20060801
  Receipt Date: 20060726
  Transmission Date: 20061208
  Serious: Yes (Life-Threatening)
  Sender: FDA-Public Use
  Company Number: SE-AVENTIS-200617812GDDC

PATIENT
  Age: 66 Year
  Sex: Female

DRUGS (8)
  1. ARAVA [Suspect]
     Indication: RHEUMATOID ARTHRITIS
     Route: 048
     Dates: start: 20040201, end: 20060109
  2. ATENOLOL [Concomitant]
     Dosage: DOSE: UNK
  3. LANSOPRAZOLE [Concomitant]
     Dosage: DOSE: UNK
  4. SALAZOPYRIN [Concomitant]
     Indication: CROHN'S DISEASE
     Dosage: DOSE: UNK
  5. KALCIPOS-D [Concomitant]
     Dosage: DOSE: UNK
  6. GABAPENTIN [Concomitant]
     Dosage: DOSE: UNK
  7. NORFLOXACIN [Concomitant]
     Dosage: DOSE: UNK
  8. PREDNISOLONE [Concomitant]
     Dosage: DOSE: UNK

REACTIONS (9)
  - CONSTIPATION [None]
  - ELECTROLYTE IMBALANCE [None]
  - GENERAL PHYSICAL HEALTH DETERIORATION [None]
  - METABOLIC ACIDOSIS [None]
  - NAUSEA [None]
  - PNEUMONIA [None]
  - SEPSIS [None]
  - URINARY TRACT INFECTION [None]
  - VOMITING [None]
